FAERS Safety Report 14484573 (Version 1)
Quarter: 2018Q1

REPORT INFORMATION
  Report Type: Spontaneous
  Country: US (occurrence: US)
  Receive Date: 20180202
  Receipt Date: 20180202
  Transmission Date: 20180509
  Serious: Yes (Life-Threatening, Disabling)
  Sender: FDA-Public Use
  Company Number: None

PATIENT
  Age: 39 Year
  Sex: Female
  Weight: 81 kg

DRUGS (3)
  1. TYLENOL [Concomitant]
     Active Substance: ACETAMINOPHEN
  2. WOMEN^S ONE A DAY VITAMIN [Concomitant]
  3. MEDROXYPROGESTERONE ACETATE. [Suspect]
     Active Substance: MEDROXYPROGESTERONE ACETATE
     Indication: PRODUCT USED FOR UNKNOWN INDICATION
     Dosage: ?          QUANTITY:1 INJECTION(S);?
     Route: 030
     Dates: start: 20180118

REACTIONS (14)
  - Muscle spasms [None]
  - Flatulence [None]
  - Hyperhidrosis [None]
  - Constipation [None]
  - Tonsillar disorder [None]
  - Abdominal pain upper [None]
  - Gait disturbance [None]
  - Pollakiuria [None]
  - Feeling of body temperature change [None]
  - Insomnia [None]
  - Stomatitis [None]
  - Decreased appetite [None]
  - Pain in extremity [None]
  - Dysphagia [None]

NARRATIVE: CASE EVENT DATE: 20180123
